FAERS Safety Report 13284117 (Version 1)
Quarter: 2017Q1

REPORT INFORMATION
  Report Type: Spontaneous
  Country: ES (occurrence: ES)
  Receive Date: 20170301
  Receipt Date: 20170301
  Transmission Date: 20170428
  Serious: Yes (Other)
  Sender: FDA-Public Use
  Company Number: ES-PFIZER INC-2017084438

PATIENT
  Age: 65 Year
  Sex: Female
  Weight: 89 kg

DRUGS (2)
  1. ZAVEDOS [Suspect]
     Active Substance: IDARUBICIN
     Indication: ACUTE MYELOID LEUKAEMIA
     Dosage: 22.1 MG, CYCLIC
     Route: 042
     Dates: start: 20160901, end: 20160903
  2. CITARABINA ACCORD [Suspect]
     Active Substance: CYTARABINE
     Dosage: 368 MG, CYCLIC
     Route: 042
     Dates: start: 20160901, end: 20160907

REACTIONS (2)
  - Coagulopathy [Recovered/Resolved]
  - Hepatitis cholestatic [Recovered/Resolved]

NARRATIVE: CASE EVENT DATE: 20160909
